FAERS Safety Report 4699714-8 (Version None)
Quarter: 2005Q2

REPORT INFORMATION
  Report Type: 
  Country: None (occurrence: None)
  Receive Date: 20050623
  Receipt Date: 20050607
  Transmission Date: 20051028
  Serious: Yes (Hospitalization, Other)
  Sender: FDA-Public Use
  Company Number: 2003-04-0171

PATIENT
  Age: 37 Year
  Sex: Female

DRUGS (4)
  1. METFORMIN [Suspect]
     Dates: start: 20021201, end: 20030318
  2. CLARITIN [Suspect]
     Indication: ASTHMA
     Dosage: 10 MG QD ORAL
     Route: 048
     Dates: start: 20021201, end: 20030318
  3. UNKNOWN [Suspect]
  4. MONTELUKAST SODIUM [Concomitant]

REACTIONS (3)
  - ALANINE AMINOTRANSFERASE INCREASED [None]
  - ASPARTATE AMINOTRANSFERASE INCREASED [None]
  - HEPATIC FUNCTION ABNORMAL [None]
